FAERS Safety Report 19979455 (Version 1)
Quarter: 2021Q4

REPORT INFORMATION
  Report Type: Report from Study
  Country: ZA (occurrence: ZA)
  Receive Date: 20211021
  Receipt Date: 20211021
  Transmission Date: 20220303
  Serious: Yes (Other)
  Sender: FDA-Public Use
  Company Number: ZA-BAYER-2021A231602

PATIENT

DRUGS (1)
  1. EYLEA [Suspect]
     Active Substance: AFLIBERCEPT
     Indication: Age-related macular degeneration
     Dosage: UNKNOWN TOTAL NUMBER OF DOSES OF EYLEA
     Dates: start: 20190802

REACTIONS (1)
  - Haemorrhage [Unknown]
